FAERS Safety Report 6587759-2 (Version None)
Quarter: 2010Q1

REPORT INFORMATION
  Report Type: 
  Country: None (occurrence: None)
  Receive Date: 20100218
  Receipt Date: 20100208
  Transmission Date: 20100710
  Serious: Yes (Hospitalization)
  Sender: FDA-Public Use
  Company Number: US-MYLANLABS-2010S1000975

PATIENT
  Age: 48 Year
  Sex: Male
  Weight: 63.5 kg

DRUGS (7)
  1. FENTANYL CITRATE [Suspect]
     Indication: PAIN
     Dosage: CHANGED PATCHES Q3D
     Route: 062
     Dates: start: 20090513, end: 20090904
  2. FENTANYL CITRATE [Suspect]
     Dosage: CHANGED PATCHES Q3D
     Route: 062
     Dates: start: 20090901
  3. OPANA [Concomitant]
     Indication: PAIN
  4. AGGRENOX [Concomitant]
     Indication: ANTICOAGULANT THERAPY
     Dosage: FOR STROKE RECOVERY
     Dates: end: 20100114
  5. TOPAMAX [Concomitant]
     Indication: CONVULSION
     Dates: end: 20100114
  6. DEPAKOTE [Concomitant]
     Indication: CONVULSION
     Dates: end: 20100114
  7. FLOMAX [Concomitant]
     Dates: end: 20100114

REACTIONS (5)
  - COMA [None]
  - DRUG EFFECT DECREASED [None]
  - DRUG EFFECT INCREASED [None]
  - PAIN [None]
  - RESPIRATORY ARREST [None]
